FAERS Safety Report 7009923-0 (Version None)
Quarter: 2010Q3

REPORT INFORMATION
  Report Type: 
  Country: None (occurrence: None)
  Receive Date: 20100917
  Receipt Date: 20100413
  Transmission Date: 20110219
  Serious: Yes (Disabling)
  Sender: FDA-Public Use
  Company Number: APP201000547

PATIENT
  Age: 32 Year
  Sex: Female

DRUGS (12)
  1. SENSORCAINE [Suspect]
     Indication: MUSCULOSKELETAL PAIN
     Dosage: SEE IMAGE
     Route: 014
     Dates: start: 19991028
  2. SENSORCAINE [Suspect]
     Indication: MUSCULOSKELETAL PAIN
     Dosage: SEE IMAGE
     Route: 014
     Dates: start: 19991028
  3. SENSORCAINE [Suspect]
     Indication: MUSCULOSKELETAL PAIN
     Dosage: SEE IMAGE
     Route: 014
     Dates: start: 20001214
  4. SENSORCAINE [Suspect]
     Indication: MUSCULOSKELETAL PAIN
     Dosage: SEE IMAGE
     Route: 014
     Dates: start: 20040323
  5. PAIN CARE 2000 PAIN PUMP [Suspect]
     Indication: MUSCULOSKELETAL PAIN
     Dates: start: 19991028
  6. STRYKER PAIN PUMP [Suspect]
     Indication: MUSCULOSKELETAL PAIN
     Dosage: LEFT SHOULDER, RIGHT SHOULDER
     Dates: start: 20001214
  7. STRYKER PAIN PUMP [Suspect]
     Indication: MUSCULOSKELETAL PAIN
     Dosage: LEFT SHOULDER, RIGHT SHOULDER
     Dates: start: 20040323
  8. POLOCAINE [Suspect]
     Indication: NERVE BLOCK
     Dosage: 20 ML, LEFT SHOULDER
     Dates: start: 20001214
  9. CHIROCAINE (LEVOBUPIVACAINE) [Suspect]
     Indication: NERVE BLOCK
     Dosage: 25 ML, LEFT SHOULDER
     Dates: start: 20001214
  10. BUPIVACAINE HYDROCHLORIDE AND EPINEPHRINE [Suspect]
     Indication: MUSCULOSKELETAL PAIN
     Dosage: 18 ML, RIGHT SHOULDER
     Dates: start: 20040323
  11. ANCEF [Concomitant]
  12. INTRAVENOUS FLUIDS [Concomitant]

REACTIONS (7)
  - ASTHENIA [None]
  - DISEASE RECURRENCE [None]
  - JOINT DISLOCATION [None]
  - JOINT INJURY [None]
  - MUSCLE STRAIN [None]
  - MUSCULOSKELETAL PAIN [None]
  - SYNOVITIS [None]
